FAERS Safety Report 22346039 (Version 5)
Quarter: 2024Q2

REPORT INFORMATION
  Report Type: Spontaneous
  Country: CN (occurrence: CN)
  Receive Date: 20230519
  Receipt Date: 20240529
  Transmission Date: 20240716
  Serious: Yes (Hospitalization, Other)
  Sender: FDA-Public Use
  Company Number: CN-ORGANON-O2305CHN001099

PATIENT
  Age: 28 Year
  Sex: Female
  Weight: 53 kg

DRUGS (12)
  1. FOLLITROPIN BETA [Suspect]
     Active Substance: FOLLITROPIN BETA
     Indication: Ovulation induction
     Dosage: 120 IU, QD
     Route: 058
     Dates: start: 20230406, end: 20230410
  2. FOLLITROPIN BETA [Suspect]
     Active Substance: FOLLITROPIN BETA
     Dosage: 150 IU, QD
     Route: 058
     Dates: start: 20230411, end: 20230413
  3. MENOTROPINS [Suspect]
     Active Substance: MENOTROPINS
     Indication: Ovulation induction
     Dosage: 75 IU, QD
     Route: 030
     Dates: start: 20230411, end: 20230413
  4. MENOTROPINS [Suspect]
     Active Substance: MENOTROPINS
     Dosage: 75 IU, QD
     Route: 030
     Dates: start: 20230416, end: 20230416
  5. MENOTROPINS [Suspect]
     Active Substance: MENOTROPINS
     Dosage: 225 IU, QD
     Route: 030
     Dates: start: 20230417, end: 20230417
  6. CHORIONIC GONADOTROPIN [Suspect]
     Active Substance: CHORIOGONADOTROPIN ALFA
     Indication: Ovulation induction
     Dosage: 10000 IU, QD
     Route: 030
     Dates: start: 20230417, end: 20230417
  7. LUTROPIN ALFA [Suspect]
     Active Substance: LUTROPIN ALFA
     Indication: Ovulation induction
     Dosage: 75 IU, QD
     Route: 058
     Dates: start: 20230416, end: 20230416
  8. SODIUM CHLORIDE [Concomitant]
     Active Substance: SODIUM CHLORIDE
     Indication: Vehicle solution use
     Dosage: 2 ML, QD
     Route: 030
     Dates: start: 20230411, end: 20230413
  9. SODIUM CHLORIDE [Concomitant]
     Active Substance: SODIUM CHLORIDE
     Dosage: 2 ML, QD
     Route: 030
     Dates: start: 20230416, end: 20230416
  10. SODIUM CHLORIDE [Concomitant]
     Active Substance: SODIUM CHLORIDE
     Dosage: 2 ML, QD
     Route: 030
     Dates: start: 20230417, end: 20230417
  11. SODIUM CHLORIDE [Concomitant]
     Active Substance: SODIUM CHLORIDE
     Dosage: 2 ML, QD
     Route: 030
     Dates: start: 20230417, end: 20230417
  12. STERILE WATER [Concomitant]
     Active Substance: WATER
     Indication: Vehicle solution use
     Dosage: 1 ML, QD
     Route: 058
     Dates: start: 20230417, end: 20230417

REACTIONS (10)
  - Ovarian hyperstimulation syndrome [Recovering/Resolving]
  - Abdominal pain [Recovering/Resolving]
  - Abdominal distension [Recovering/Resolving]
  - Chest discomfort [Recovering/Resolving]
  - Asthenia [Recovering/Resolving]
  - Dyspnoea [Recovering/Resolving]
  - Pallor [Recovering/Resolving]
  - Dyspepsia [Recovered/Resolved]
  - Pallor [Recovered/Resolved]
  - Tension [Unknown]

NARRATIVE: CASE EVENT DATE: 20230419
